FAERS Safety Report 4852957-2 (Version None)
Quarter: 2005Q4

REPORT INFORMATION
  Report Type: 
  Country: None (occurrence: None)
  Receive Date: 20051212
  Receipt Date: 20051123
  Transmission Date: 20060501
  Serious: Yes (Other)
  Sender: FDA-Public Use
  Company Number: US200511000221

PATIENT
  Age: 49 Year
  Sex: Female
  Weight: 59 kg

DRUGS (8)
  1. CYMBALTA [Suspect]
     Indication: DEPRESSION
     Dosage: 60 MG, DAILY (1/D)
     Dates: start: 20051018, end: 20051115
  2. COUMADIN [Concomitant]
  3. LEVOXYL [Concomitant]
  4. ZANTAC [Concomitant]
  5. METOPROLOL SUCCINATE [Concomitant]
  6. PROTONIX [Concomitant]
  7. RHINOCORT [Concomitant]
  8. BACTRIM DS [Concomitant]

REACTIONS (1)
  - INTERNATIONAL NORMALISED RATIO INCREASED [None]
